FAERS Safety Report 23324783 (Version 2)
Quarter: 2024Q4

REPORT INFORMATION
  Report Type: Spontaneous
  Country: MY (occurrence: MY)
  Receive Date: 20231221
  Receipt Date: 20241105
  Transmission Date: 20250114
  Serious: Yes (Hospitalization, Other)
  Sender: SCIEGEN PHARMACEUTICALS INC
  Company Number: MY-SCIEGENP-2023SCLIT00773

PATIENT
  Age: 40 Year
  Sex: Male

DRUGS (1)
  1. METFORMIN HYDROCHLORIDE [Suspect]
     Active Substance: METFORMIN HYDROCHLORIDE
     Indication: Type 2 diabetes mellitus
     Route: 065

REACTIONS (5)
  - Acute kidney injury [Unknown]
  - Hypovolaemic shock [Unknown]
  - Gastroenteritis [Unknown]
  - Metabolic acidosis [Unknown]
  - Diarrhoea [Recovered/Resolved]
